FAERS Safety Report 11463023 (Version 7)
Quarter: 2017Q3

REPORT INFORMATION
  Report Type: Report from Study
  Country: US (occurrence: US)
  Receive Date: 20150905
  Receipt Date: 20170926
  Transmission Date: 20171127
  Serious: Yes (Hospitalization, Other)
  Sender: FDA-Public Use
  Company Number: PHHY2015US106396

PATIENT
  Age: 58 Year
  Sex: Male
  Weight: 126.6 kg

DRUGS (60)
  1. GILENYA [Suspect]
     Active Substance: FINGOLIMOD HYDROCHLORIDE
     Indication: RELAPSING-REMITTING MULTIPLE SCLEROSIS
     Dosage: 0.5 MG, QD
     Route: 048
     Dates: start: 20140404
  2. DELTASONE [Concomitant]
     Active Substance: PREDNISONE
     Indication: MULTIPLE SCLEROSIS
     Dosage: 10 MG, BID
     Route: 048
     Dates: start: 20170717, end: 20170726
  3. DILAUDID [Concomitant]
     Active Substance: HYDROMORPHONE HYDROCHLORIDE
     Indication: PRODUCT USED FOR UNKNOWN INDICATION
     Dosage: 0.5 MG, UNK
     Route: 065
     Dates: start: 20170718, end: 20170729
  4. POTASSIUM CHLORIDE. [Concomitant]
     Active Substance: POTASSIUM CHLORIDE
     Dosage: 40 MEQ, BID
     Route: 065
     Dates: start: 20170720, end: 20170720
  5. TIGAN [Concomitant]
     Active Substance: TRIMETHOBENZAMIDE HYDROCHLORIDE
     Indication: PRODUCT USED FOR UNKNOWN INDICATION
     Dosage: 1 M, ONCE
     Route: 065
     Dates: start: 20170718, end: 20170718
  6. CALCIUM GLUCONATE. [Concomitant]
     Active Substance: CALCIUM GLUCONATE
     Indication: PRODUCT USED FOR UNKNOWN INDICATION
     Dosage: 1 G, UNK
     Route: 042
     Dates: start: 20170719, end: 20170719
  7. SODIUM CHLORIDE. [Concomitant]
     Active Substance: SODIUM CHLORIDE
     Dosage: 1000 ML, UNK
     Route: 042
     Dates: start: 20170720, end: 20170720
  8. SUBLIMAZE [Concomitant]
     Active Substance: FENTANYL CITRATE
     Indication: PRODUCT USED FOR UNKNOWN INDICATION
     Dosage: 25 UG, UNK
     Route: 042
     Dates: start: 20170716, end: 20170716
  9. DEPO-TESTOSTERONE [Concomitant]
     Active Substance: TESTOSTERONE CYPIONATE
     Indication: PRODUCT USED FOR UNKNOWN INDICATION
     Dosage: 200 MG/ML, QW3
     Route: 030
  10. ZESTORETIC [Concomitant]
     Active Substance: HYDROCHLOROTHIAZIDE\LISINOPRIL
     Indication: PRODUCT USED FOR UNKNOWN INDICATION
     Dosage: 1 DF, QD (20 MG LISINOPRIL/12.5 MG HCTZ)
     Route: 048
  11. MULTIVITAMINS [Concomitant]
     Active Substance: VITAMINS
     Indication: PRODUCT USED FOR UNKNOWN INDICATION
     Route: 065
  12. LOVENOX [Concomitant]
     Active Substance: ENOXAPARIN SODIUM
     Indication: PULMONARY EMBOLISM
     Dosage: 140 MG, ONCE SUBQ
     Route: 065
     Dates: start: 20170716, end: 20170716
  13. TPA [Concomitant]
     Active Substance: ALTEPLASE
     Indication: PULMONARY EMBOLISM
     Dosage: UNK
     Route: 065
     Dates: start: 20170717, end: 20170717
  14. SODIUM CHLORIDE. [Concomitant]
     Active Substance: SODIUM CHLORIDE
     Indication: DEHYDRATION
     Dosage: 100 ML/HR, UNK
     Route: 042
     Dates: start: 20170718, end: 20170728
  15. ZOSYN [Concomitant]
     Active Substance: PIPERACILLIN SODIUM\TAZOBACTAM SODIUM
     Indication: PNEUMONIA ASPIRATION
     Dosage: 3.375 OT, TID
     Route: 042
     Dates: start: 20170718, end: 20170719
  16. LIDOCAINE. [Concomitant]
     Active Substance: LIDOCAINE
     Indication: PRODUCT USED FOR UNKNOWN INDICATION
     Route: 062
  17. ASPIRIN. [Concomitant]
     Active Substance: ASPIRIN
     Indication: PULMONARY EMBOLISM
     Dosage: 325 MG, ONE TIME
     Route: 065
     Dates: start: 20170716, end: 20170716
  18. TIGAN [Concomitant]
     Active Substance: TRIMETHOBENZAMIDE HYDROCHLORIDE
     Dosage: 200 MG Q8 HOURS, PRN
     Route: 065
     Dates: start: 20170720, end: 20170729
  19. MELATONIN [Concomitant]
     Active Substance: MELATONIN
     Indication: SLEEP DISORDER
     Dosage: 5 MG, QHS
     Route: 065
     Dates: start: 20170719, end: 20170725
  20. HYDROCORTISON [Concomitant]
     Active Substance: HYDROCORTISONE
     Indication: PRODUCT USED FOR UNKNOWN INDICATION
     Dosage: PRAMOXINE RECTAL FORM
     Route: 054
     Dates: start: 20170720, end: 20170729
  21. DIPRIVAN [Concomitant]
     Active Substance: PROPOFOL
     Indication: PRODUCT USED FOR UNKNOWN INDICATION
     Dosage: 200 MG, UNK
     Route: 065
     Dates: start: 20170720, end: 20170720
  22. ROCEPHIN [Concomitant]
     Active Substance: CEFTRIAXONE SODIUM
     Indication: PRODUCT USED FOR UNKNOWN INDICATION
     Dosage: 1000 MG ONCE, UNK
     Route: 042
     Dates: start: 20170716, end: 20170716
  23. ACETAMINOPHEN. [Concomitant]
     Active Substance: ACETAMINOPHEN
     Indication: PAIN
     Dosage: 325/650 MG Q4 HOURS RECTALLY AS NEEDED
     Route: 054
     Dates: start: 20170716, end: 20170729
  24. VITAMIN D2 [Concomitant]
     Active Substance: ERGOCALCIFEROL
     Indication: PRODUCT USED FOR UNKNOWN INDICATION
     Route: 065
  25. ALBUMIN HUMAN [Concomitant]
     Active Substance: ALBUMIN HUMAN
     Indication: PRODUCT USED FOR UNKNOWN INDICATION
     Dosage: 5 %, UNK
     Route: 065
     Dates: start: 20170717, end: 20170717
  26. SENOKOT CON DOCUSATO [Concomitant]
     Indication: PRODUCT USED FOR UNKNOWN INDICATION
     Dosage: 2QHS, PRN
     Route: 065
     Dates: start: 20170717
  27. ASPIRIN (E.C.) [Concomitant]
     Active Substance: ASPIRIN
     Indication: PULMONARY EMBOLISM
     Dosage: 81 MG, QD
     Route: 065
     Dates: start: 20170717, end: 20170729
  28. HEPARIN [Concomitant]
     Active Substance: HEPARIN SODIUM
     Indication: PULMONARY EMBOLISM
     Dosage: 80 UNK, UNK
     Route: 042
     Dates: start: 20170716, end: 20170724
  29. POTASSIUM CHLORIDE. [Concomitant]
     Active Substance: POTASSIUM CHLORIDE
     Dosage: 10 MEQ, TID
     Route: 065
     Dates: start: 20170728
  30. ARTIFICIAL TEARS [Concomitant]
     Active Substance: GLYCERIN\HYPROMELLOSES\POLYETHYLENE GLYCOL 400
     Indication: PRODUCT USED FOR UNKNOWN INDICATION
     Dosage: 0.1-0.3% BILATERAL EYES
     Route: 065
     Dates: start: 20170728, end: 20170729
  31. ZOSYN [Concomitant]
     Active Substance: PIPERACILLIN SODIUM\TAZOBACTAM SODIUM
     Dosage: 3.375 MG, Q12H
     Route: 042
     Dates: start: 20170719, end: 20170724
  32. SUCRALFATE. [Concomitant]
     Active Substance: SUCRALFATE
     Indication: PRODUCT USED FOR UNKNOWN INDICATION
     Route: 065
  33. ACETAMINOPHEN W/HYDROCODONE [Concomitant]
     Active Substance: ACETAMINOPHEN\HYDROCODONE
     Indication: PRODUCT USED FOR UNKNOWN INDICATION
     Route: 065
  34. CALCII CHLORIDUM [Concomitant]
     Indication: PRODUCT USED FOR UNKNOWN INDICATION
     Dosage: 1 G, ONCE
     Route: 042
     Dates: start: 20170717, end: 20170717
  35. LOVENOX [Concomitant]
     Active Substance: ENOXAPARIN SODIUM
     Dosage: 40 MG AUBQ, QD
     Route: 065
     Dates: start: 20170716, end: 20170717
  36. POTASSIUM CHLORIDE. [Concomitant]
     Active Substance: POTASSIUM CHLORIDE
     Indication: PRODUCT USED FOR UNKNOWN INDICATION
     Dosage: 20 MEQ, UNK
     Route: 042
     Dates: start: 20170718, end: 20170720
  37. PROTONIX [Concomitant]
     Active Substance: PANTOPRAZOLE SODIUM
     Indication: PRODUCT USED FOR UNKNOWN INDICATION
     Dosage: 40 MG, QD
     Route: 048
     Dates: start: 20170719, end: 20170720
  38. LACTOBACILLUS [Concomitant]
     Active Substance: LACTOBACILLUS ACIDOPHILUS
     Indication: PRODUCT USED FOR UNKNOWN INDICATION
     Dosage: BIF IDOBACTERIUM, QD
     Route: 065
     Dates: start: 20170720, end: 20170729
  39. COUMADIN [Concomitant]
     Active Substance: WARFARIN SODIUM
     Indication: PULMONARY EMBOLISM
     Dosage: VARIOUS DOSES
     Route: 065
     Dates: start: 20170721
  40. ULTRAM [Concomitant]
     Active Substance: TRAMADOL HYDROCHLORIDE
     Indication: PRODUCT USED FOR UNKNOWN INDICATION
     Dosage: 50 MG, QID (AS NEEDED)
     Route: 048
  41. ZOFRAN [Concomitant]
     Active Substance: ONDANSETRON HYDROCHLORIDE
     Indication: PRODUCT USED FOR UNKNOWN INDICATION
     Dosage: 4 MG, Q4 HOURS
     Route: 042
     Dates: start: 20170717, end: 20170720
  42. SODIUM BICARBONATE. [Concomitant]
     Active Substance: SODIUM BICARBONATE
     Indication: PRODUCT USED FOR UNKNOWN INDICATION
     Dosage: 100ML/HR
     Route: 065
     Dates: start: 20170717, end: 20170717
  43. DULCOLAX NOS [Concomitant]
     Active Substance: BISACODYL OR DOCUSATE SODIUM
     Indication: PRODUCT USED FOR UNKNOWN INDICATION
     Dosage: 10 MG, ONCE TIME
     Route: 065
     Dates: start: 20170719, end: 20170719
  44. XYLOCAINE [Concomitant]
     Active Substance: LIDOCAINE HYDROCHLORIDE
     Indication: PRODUCT USED FOR UNKNOWN INDICATION
     Dosage: 2 %, PRN
     Route: 061
     Dates: start: 20170719, end: 20170729
  45. MIRALAX [Concomitant]
     Active Substance: POLYETHYLENE GLYCOL 3350
     Indication: PRODUCT USED FOR UNKNOWN INDICATION
     Dosage: 34 G, QD
     Route: 048
     Dates: start: 20170719, end: 20170719
  46. PERCOCET [Concomitant]
     Active Substance: ACETAMINOPHEN\OXYCODONE HYDROCHLORIDE
     Indication: PRODUCT USED FOR UNKNOWN INDICATION
     Dosage: 1 DF, QHS (5 MG OXYCODONE/325 MG PARACETAMOL)
     Route: 048
  47. PEPCID [Concomitant]
     Active Substance: FAMOTIDINE
     Indication: PRODUCT USED FOR UNKNOWN INDICATION
     Dosage: 20 MG, ONCE
     Route: 042
     Dates: start: 20170717, end: 20170717
  48. VISTARIL [Concomitant]
     Active Substance: HYDROXYZINE PAMOATE
     Indication: PRODUCT USED FOR UNKNOWN INDICATION
     Dosage: 25 MG, TID PRN
     Route: 065
     Dates: start: 20170717
  49. HEPARIN [Concomitant]
     Active Substance: HEPARIN SODIUM
     Dosage: 40 OT, AS NEEDED
     Route: 065
     Dates: start: 20170716, end: 20170724
  50. SYNTHROID [Concomitant]
     Active Substance: LEVOTHYROXINE SODIUM
     Indication: PRODUCT USED FOR UNKNOWN INDICATION
     Dosage: 1 DF, QD (BEFORE BREAKFAST)
     Route: 048
  51. ZAFIRLUKAST. [Concomitant]
     Active Substance: ZAFIRLUKAST
     Indication: PRODUCT USED FOR UNKNOWN INDICATION
     Route: 065
  52. ZITHROMAX [Concomitant]
     Active Substance: AZITHROMYCIN DIHYDRATE
     Indication: PRODUCT USED FOR UNKNOWN INDICATION
     Dosage: 500 MG, UNK
     Route: 042
     Dates: start: 20170716, end: 20170716
  53. ALBUMIN HUMAN [Concomitant]
     Active Substance: ALBUMIN HUMAN
     Dosage: 250 ML, UNK
     Route: 065
     Dates: start: 20170720, end: 20170720
  54. COMPAZINE [Concomitant]
     Active Substance: PROCHLORPERAZINE MALEATE
     Indication: PRODUCT USED FOR UNKNOWN INDICATION
     Dosage: 10 MG, Q6H PRN
     Route: 065
     Dates: start: 20170717, end: 20170717
  55. PROTONIX [Concomitant]
     Active Substance: PANTOPRAZOLE SODIUM
     Dosage: 40 MG, QD
     Route: 042
     Dates: start: 20170720, end: 20170729
  56. MYCOSTATIN [Concomitant]
     Active Substance: NYSTATIN
     Indication: PRODUCT USED FOR UNKNOWN INDICATION
     Dosage: 5 ML, QID
     Route: 065
     Dates: start: 20170720, end: 20170724
  57. CALCIUM CARBONATE. [Concomitant]
     Active Substance: CALCIUM CARBONATE
     Indication: PRODUCT USED FOR UNKNOWN INDICATION
     Dosage: TUMS 400 MG, QD
     Route: 048
     Dates: start: 20170728, end: 20170729
  58. LEVOPHED [Concomitant]
     Active Substance: NOREPINEPHRINE BITARTRATE
     Indication: HYPOTENSION
     Dosage: 8 MG, UNK
     Route: 042
     Dates: start: 20170716, end: 20170727
  59. LEVOPHED [Concomitant]
     Active Substance: NOREPINEPHRINE BITARTRATE
     Dosage: UNK
     Route: 065
     Dates: start: 20170720, end: 20170720
  60. SODIUM CHLORIDE. [Concomitant]
     Active Substance: SODIUM CHLORIDE
     Indication: DEHYDRATION
     Dosage: 1000 ML ONCE, UNK
     Route: 042
     Dates: start: 20170716, end: 20170717

REACTIONS (28)
  - Urinary tract infection [Recovered/Resolved]
  - Rectal haemorrhage [Recovered/Resolved]
  - Hypocalcaemia [Unknown]
  - Pyuria [Unknown]
  - Hyperkalaemia [Recovered/Resolved]
  - Urinary incontinence [Recovered/Resolved]
  - Fluid overload [Recovered/Resolved]
  - Tachycardia [Recovered/Resolved]
  - Peripheral venous disease [Unknown]
  - Hyperuricaemia [Unknown]
  - Upper respiratory tract infection [Recovered/Resolved]
  - Bronchitis [Recovered/Resolved]
  - Vitamin D deficiency [Not Recovered/Not Resolved]
  - Abdominal distension [Unknown]
  - Haematuria [Unknown]
  - Hypoxia [Recovered/Resolved]
  - Ileus [Unknown]
  - Pollakiuria [Unknown]
  - Tachycardia [Recovered/Resolved]
  - Haemorrhoids [Unknown]
  - Acute kidney injury [Recovered/Resolved]
  - Cardiogenic shock [Recovered/Resolved]
  - Cellulitis [Recovered/Resolved]
  - Dyspnoea [Unknown]
  - Nephrolithiasis [Unknown]
  - Gastrooesophageal reflux disease [Unknown]
  - Left ventricular hypertrophy [Unknown]
  - Dizziness [Unknown]

NARRATIVE: CASE EVENT DATE: 20150105
